FAERS Safety Report 8525333-9 (Version None)
Quarter: 2012Q3

REPORT INFORMATION
  Report Type: 
  Country: None (occurrence: None)
  Receive Date: 20120720
  Receipt Date: 20120718
  Transmission Date: 20120928
  Serious: Yes (Other)
  Sender: FDA-Public Use
  Company Number: PHHY2010DE80630

PATIENT
  Age: 87 Year
  Sex: Male
  Weight: 62 kg

DRUGS (5)
  1. AMBER [Concomitant]
     Dosage: 1000 MG, DAILY
     Route: 048
  2. EXELON [Suspect]
     Indication: DEMENTIA
     Dosage: 4.6 MG/24HS
     Route: 062
     Dates: start: 20101106, end: 20101123
  3. OPIUM/NALOXONE TAB [Concomitant]
     Indication: NEURALGIA
     Dosage: 80-0-40
  4. PANTOPRAZOLE [Concomitant]
     Dosage: 40 MG, DAILY
     Route: 048
  5. LYRICA [Concomitant]
     Indication: NEURALGIA
     Dosage: 150 MG, QD

REACTIONS (6)
  - CONFUSIONAL STATE [None]
  - ASTHENIA [None]
  - FALL [None]
  - SOMNOLENCE [None]
  - CONTUSION [None]
  - HALLUCINATION [None]
